FAERS Safety Report 6341934-0 (Version None)
Quarter: 2009Q3

REPORT INFORMATION
  Report Type: 
  Country: None (occurrence: None)
  Receive Date: 20090904
  Receipt Date: 20090831
  Transmission Date: 20100115
  Serious: Yes (Death, Hospitalization, Other)
  Sender: FDA-Public Use
  Company Number: PHHY2009GB36983

PATIENT
  Age: 61 Year
  Sex: Male

DRUGS (6)
  1. CYCLOSPORINE [Suspect]
     Indication: LUNG TRANSPLANT
     Dosage: UNK
     Dates: start: 20061101
  2. MYCOPHENOLATE MOFETIL [Suspect]
     Indication: LUNG TRANSPLANT
     Dosage: 1 G
     Dates: start: 20061101
  3. METHYLPREDNISOLONE [Suspect]
     Indication: LUNG TRANSPLANT
     Dosage: 500 MG
     Dates: start: 20061101
  4. METHYLPREDNISOLONE [Suspect]
     Dosage: 1 G
     Route: 042
  5. METHYLPREDNISOLONE [Suspect]
     Dosage: 500 MG
     Route: 042
  6. ANTITHYMOCYTE IMMUNOGLOBULIN (RABBIT) [Concomitant]
     Dosage: 3 DOSES, 2 MG/KG EACH

REACTIONS (19)
  - ABDOMINAL PAIN [None]
  - ANEURYSM RUPTURED [None]
  - AORTIC ANEURYSM [None]
  - ARTERIAL DISORDER [None]
  - CIRCULATORY COLLAPSE [None]
  - COLECTOMY [None]
  - COUGH [None]
  - DYSPNOEA EXERTIONAL [None]
  - EPSTEIN-BARR VIRUS ASSOCIATED LYMPHOPROLIFERATIVE DISORDER [None]
  - HAEMODYNAMIC INSTABILITY [None]
  - HAEMORRHAGE [None]
  - HYPOXIA [None]
  - LEUKOPENIA [None]
  - LUNG TRANSPLANT REJECTION [None]
  - MULTI-ORGAN FAILURE [None]
  - OEDEMA MUCOSAL [None]
  - PULMONARY HILUM MASS [None]
  - PYREXIA [None]
  - SPLENIC ARTERY ANEURYSM [None]
